FAERS Safety Report 24213400 (Version 3)
Quarter: 2025Q1

REPORT INFORMATION
  Report Type: Spontaneous
  Country: GR (occurrence: GR)
  Receive Date: 20240815
  Receipt Date: 20250109
  Transmission Date: 20250408
  Serious: No
  Sender: PFIZER
  Company Number: GR-PFIZER INC-PV202400104017

PATIENT
  Age: 3 Year
  Sex: Male
  Weight: 11.7 kg

DRUGS (1)
  1. GENOTROPIN [Suspect]
     Active Substance: SOMATROPIN
     Indication: Dwarfism
     Route: 058
     Dates: start: 202407

REACTIONS (2)
  - Incorrect dose administered by device [Unknown]
  - Wrong technique in device usage process [Unknown]
